FAERS Safety Report 6767538-3 (Version None)
Quarter: 2010Q2

REPORT INFORMATION
  Report Type: 
  Country: None (occurrence: None)
  Receive Date: 20100610
  Receipt Date: 20100524
  Transmission Date: 20101027
  Serious: Yes (Other)
  Sender: FDA-Public Use
  Company Number: ZYD-10-AE-120

PATIENT
  Age: 25 Year
  Sex: Female

DRUGS (2)
  1. RIBAVIRIN [Suspect]
  2. PEGINTERFERON ALPHA (MFR. UNKNOWN) [Suspect]

REACTIONS (2)
  - ABORTION SPONTANEOUS [None]
  - DRUG EXPOSURE DURING PREGNANCY [None]
